FAERS Safety Report 5071480-6 (Version None)
Quarter: 2006Q3

REPORT INFORMATION
  Report Type: 
  Country: None (occurrence: None)
  Receive Date: 20060804
  Receipt Date: 20060801
  Transmission Date: 20061208
  Serious: Yes (Other)
  Sender: FDA-Public Use
  Company Number: 45623

PATIENT
  Age: 45 Year
  Sex: Male

DRUGS (13)
  1. ARTIST [Suspect]
     Indication: CARDIAC FAILURE CONGESTIVE
     Route: 048
  2. LUDIOMIL [Suspect]
     Indication: DEPRESSION
     Dosage: 30MG PER DAY
     Route: 048
     Dates: end: 20060705
  3. TOLEDOMIN [Suspect]
     Route: 048
     Dates: end: 20060705
  4. ALOSENN [Concomitant]
  5. ROHYPNOL [Concomitant]
  6. PURSENNID [Concomitant]
  7. URINORM [Concomitant]
  8. PANALDINE [Concomitant]
  9. ASPIRIN [Concomitant]
  10. ISOSORBIDE MONONITRATE [Concomitant]
  11. MUCOSTA [Concomitant]
  12. BLOPRESS [Concomitant]
  13. LANIRAPID [Concomitant]

REACTIONS (1)
  - BLOOD CREATINE PHOSPHOKINASE INCREASED [None]
